FAERS Safety Report 4842974-0 (Version None)
Quarter: 2005Q4

REPORT INFORMATION
  Report Type: 
  Country: None (occurrence: None)
  Receive Date: 20051130
  Receipt Date: 20051117
  Transmission Date: 20060501
  Serious: Yes (Life-Threatening, Other)
  Sender: FDA-Public Use
  Company Number: EM2005-0631

PATIENT
  Age: 57 Year
  Sex: Male

DRUGS (1)
  1. PROLEUKIN [Suspect]
     Indication: RENAL CELL CARCINOMA STAGE UNSPECIFIED
     Dosage: 18  MIU/M2, QD, CONT IV INFUS

REACTIONS (3)
  - ATRIAL FIBRILLATION [None]
  - CARDIAC FAILURE ACUTE [None]
  - DIASTOLIC DYSFUNCTION [None]
